FAERS Safety Report 11079498 (Version 1)
Quarter: 2015Q2

REPORT INFORMATION
  Report Type: Spontaneous
  Country: US (occurrence: US)
  Receive Date: 20150430
  Receipt Date: 20150430
  Transmission Date: 20150821
  Serious: Yes (Hospitalization, Other)
  Sender: FDA-Public Use
  Company Number: US-PURDUE-USA-2015-0123030

PATIENT
  Age: 67 Year
  Sex: Female

DRUGS (1)
  1. SENOKOT-S [Suspect]
     Active Substance: DOCUSATE SODIUM\SENNOSIDES
     Indication: CONSTIPATION
     Dosage: 1 IN THE MORNING, 2 IN THE EVENING
     Route: 048

REACTIONS (7)
  - Diverticulitis [Unknown]
  - Intestinal obstruction [Unknown]
  - Haemorrhoid operation [Unknown]
  - Product label confusion [Unknown]
  - Constipation [Unknown]
  - Rectal tenesmus [Unknown]
  - Haemorrhoids [Unknown]

NARRATIVE: CASE EVENT DATE: 201409
